FAERS Safety Report 15012869 (Version 1)
Quarter: 2018Q2

REPORT INFORMATION
  Report Type: Report from Study
  Country: NL (occurrence: NL)
  Receive Date: 20180614
  Receipt Date: 20180614
  Transmission Date: 20180711
  Serious: Yes (Hospitalization)
  Sender: FDA-Public Use
  Company Number: PHHY2018NL005220

PATIENT
  Age: 67 Year
  Sex: Male

DRUGS (1)
  1. ZOMETA [Suspect]
     Active Substance: ZOLEDRONIC ACID
     Indication: METASTASIS
     Dosage: 4 MG/100ML, QMO
     Route: 042

REACTIONS (5)
  - Pain [Unknown]
  - Product use in unapproved indication [Unknown]
  - Diarrhoea [Unknown]
  - Terminal state [Unknown]
  - Malaise [Unknown]

NARRATIVE: CASE EVENT DATE: 20180426
